FAERS Safety Report 8611691-3 (Version None)
Quarter: 2012Q3

REPORT INFORMATION
  Report Type: 
  Country: None (occurrence: None)
  Receive Date: 20120822
  Receipt Date: 20120803
  Transmission Date: 20120928
  Serious: Yes (Hospitalization)
  Sender: FDA-Public Use
  Company Number: US-ROCHE-1019154

PATIENT
  Sex: Female

DRUGS (6)
  1. MOTRIN [Concomitant]
     Indication: PAIN
     Route: 048
     Dates: start: 19900101
  2. FEXOFENADINE [Concomitant]
     Route: 048
  3. ZELBORAF [Suspect]
     Indication: METASTATIC MALIGNANT MELANOMA
     Route: 048
     Dates: start: 20111006
  4. ATORVASTATIN [Concomitant]
     Route: 048
  5. ATENOLOL [Concomitant]
     Indication: HYPERTENSION
     Route: 048
     Dates: start: 20020101
  6. IMODIUM [Concomitant]
     Indication: DIARRHOEA

REACTIONS (24)
  - DRY SKIN [None]
  - PRURITUS [None]
  - ALOPECIA [None]
  - FALL [None]
  - RASH [None]
  - SKIN DISORDER [None]
  - DIARRHOEA [None]
  - DIZZINESS [None]
  - CELLULITIS [None]
  - BLISTER [None]
  - CONSTIPATION [None]
  - ASTHENIA [None]
  - DYSPHONIA [None]
  - SKIN REACTION [None]
  - ARTHROPATHY [None]
  - VOMITING [None]
  - DYSGEUSIA [None]
  - SQUAMOUS CELL CARCINOMA [None]
  - FATIGUE [None]
  - ARTHRALGIA [None]
  - NAUSEA [None]
  - LACRIMATION INCREASED [None]
  - DECREASED APPETITE [None]
  - VISION BLURRED [None]
